FAERS Safety Report 18270853 (Version 1)
Quarter: 2020Q3

REPORT INFORMATION
  Report Type: Spontaneous
  Country: GB (occurrence: GB)
  Receive Date: 20200916
  Receipt Date: 20200916
  Transmission Date: 20201103
  Serious: Yes (Other)
  Sender: FDA-Public Use
  Company Number: GB-ADVANZ PHARMA-202009008602

PATIENT

DRUGS (5)
  1. METHYLPREDNISOLONE. [Suspect]
     Active Substance: METHYLPREDNISOLONE
     Indication: CHRONIC LYMPHOCYTIC INFLAMMATION WITH PONTINE PERIVASCULAR ENHANCEMENT RESPONSIVE TO STEROIDS
     Dosage: DOSAGE FORM: UNSPECIFIED
     Route: 042
  2. INFLIXIMAB, RECOMBINANT [Suspect]
     Active Substance: INFLIXIMAB
     Indication: CHRONIC LYMPHOCYTIC INFLAMMATION WITH PONTINE PERIVASCULAR ENHANCEMENT RESPONSIVE TO STEROIDS
     Dosage: DOSAGE FORM: LYOPHILIZED POWDER, LYOPHILIZED POWDER
     Route: 042
  3. PREDNISOLONE. [Suspect]
     Active Substance: PREDNISOLONE
     Indication: CHRONIC LYMPHOCYTIC INFLAMMATION WITH PONTINE PERIVASCULAR ENHANCEMENT RESPONSIVE TO STEROIDS
     Dosage: DOSAGE FORM: UNSPECIFIED
     Route: 048
  4. METHYLPREDNISOLONE. [Suspect]
     Active Substance: METHYLPREDNISOLONE
     Dosage: 8 WEEK, DOSAGE FORM: UNSPECIFIED
     Route: 042
  5. MYCOPHENOLATE MOFETIL. [Concomitant]
     Active Substance: MYCOPHENOLATE MOFETIL
     Indication: CHRONIC LYMPHOCYTIC INFLAMMATION WITH PONTINE PERIVASCULAR ENHANCEMENT RESPONSIVE TO STEROIDS
     Dosage: DOSAGE FORM: UNSPECIFIED
     Route: 065

REACTIONS (9)
  - Hemiplegia [Unknown]
  - Off label use [Unknown]
  - Urinary incontinence [Unknown]
  - Product use in unapproved indication [Unknown]
  - Bulbar palsy [Unknown]
  - B-cell lymphoma [Recovering/Resolving]
  - Lethargy [Unknown]
  - Ataxia [Unknown]
  - Abnormal behaviour [Unknown]
